FAERS Safety Report 7058716-7 (Version None)
Quarter: 2010Q4

REPORT INFORMATION
  Report Type: 
  Country: None (occurrence: None)
  Receive Date: 20101022
  Receipt Date: 20101014
  Transmission Date: 20110411
  Serious: Yes (Hospitalization)
  Sender: FDA-Public Use
  Company Number: A0881136B

PATIENT
  Age: 62 Year
  Sex: Male
  Weight: 107.3 kg

DRUGS (2)
  1. OFATUMUMAB [Suspect]
     Dosage: 1000MG CYCLIC
     Route: 042
     Dates: start: 20100726
  2. BENDAMUSTINE [Suspect]
     Dosage: 70MGM2 CYCLIC
     Route: 042
     Dates: start: 20100802

REACTIONS (9)
  - APATHY [None]
  - ASTHENIA [None]
  - FAILURE TO THRIVE [None]
  - FATIGUE [None]
  - HEPATIC INFECTION FUNGAL [None]
  - PNEUMONIA [None]
  - PYREXIA [None]
  - SPLENIC INFECTION FUNGAL [None]
  - STREPTOCOCCAL BACTERAEMIA [None]
